FAERS Safety Report 6491313-0 (Version None)
Quarter: 2009Q4

REPORT INFORMATION
  Report Type: 
  Country: None (occurrence: None)
  Receive Date: 20091211
  Receipt Date: 20091204
  Transmission Date: 20100525
  Serious: Yes (Other)
  Sender: FDA-Public Use
  Company Number: US-ELI_LILLY_AND_COMPANY-US200910006892

PATIENT
  Sex: Female
  Weight: 63.492 kg

DRUGS (10)
  1. BYETTA [Suspect]
     Indication: TYPE 2 DIABETES MELLITUS
     Dosage: 5 UG, 2/D
     Route: 058
     Dates: start: 20050101, end: 20050101
  2. BYETTA [Suspect]
     Dosage: 10 UG, 2/D
     Route: 058
     Dates: start: 20050101
  3. GLIPIZIDE [Concomitant]
     Indication: TYPE 2 DIABETES MELLITUS
     Dosage: 10 MG, DAILY (1/D)
  4. DETROL LA [Concomitant]
     Dosage: 4 MG, DAILY (1/D)
  5. FUROSEMIDE [Concomitant]
     Dosage: 20 MG, DAILY (1/D)
  6. DIOVAN [Concomitant]
     Indication: HYPERTENSION
     Dosage: 160 MG, DAILY (1/D)
  7. SIMVASTATIN [Concomitant]
     Indication: BLOOD CHOLESTEROL INCREASED
     Dosage: 40 MG, EACH EVENING
  8. ASPIRIN [Concomitant]
     Dosage: 81 MG, DAILY (1/D)
  9. LUMIGAN [Concomitant]
     Indication: GLAUCOMA
     Route: 047
  10. COMBIGAN [Concomitant]
     Indication: GLAUCOMA
     Route: 047

REACTIONS (6)
  - BLOOD CREATININE [None]
  - BLOOD GLUCOSE INCREASED [None]
  - BLOOD UREA [None]
  - DYSPEPSIA [None]
  - MACULAR DEGENERATION [None]
  - WEIGHT DECREASED [None]
